FAERS Safety Report 6894551-8 (Version None)
Quarter: 2010Q3

REPORT INFORMATION
  Report Type: 
  Country: None (occurrence: None)
  Receive Date: 20100802
  Receipt Date: 20100721
  Transmission Date: 20110219
  Serious: Yes (Death, Other)
  Sender: FDA-Public Use
  Company Number: JP-PFIZER INC-2010090810

PATIENT
  Age: 26 Day
  Sex: Male
  Weight: 0.724 kg

DRUGS (2)
  1. SILDENAFIL CITRATE [Suspect]
     Indication: PULMONARY HYPERTENSION
     Dosage: UNK
  2. NITRIC OXIDE [Concomitant]
     Dosage: UNK

REACTIONS (3)
  - GENERALISED OEDEMA [None]
  - PULMONARY HYPERTENSIVE CRISIS [None]
  - RESPIRATORY FAILURE [None]
